FAERS Safety Report 7806824-2 (Version None)
Quarter: 2011Q4

REPORT INFORMATION
  Report Type: 
  Country: None (occurrence: None)
  Receive Date: 20111011
  Receipt Date: 20111010
  Transmission Date: 20120403
  Serious: Yes (Hospitalization, Other)
  Sender: FDA-Public Use
  Company Number: GB-TEVA-304271ISR

PATIENT
  Age: 22 Year
  Sex: Female

DRUGS (1)
  1. AMLODIPINE [Suspect]
     Dosage: 280 MG, SINGLE

REACTIONS (2)
  - NON-CARDIOGENIC PULMONARY OEDEMA [None]
  - OVERDOSE [None]
